FAERS Safety Report 6725966-6 (Version None)
Quarter: 2010Q2

REPORT INFORMATION
  Report Type: 
  Country: None (occurrence: None)
  Receive Date: 20100512
  Receipt Date: 20100428
  Transmission Date: 20101027
  Serious: Yes (Other)
  Sender: FDA-Public Use
  Company Number: 230015M10DEU

PATIENT
  Age: 32 Year
  Sex: Female
  Weight: 60 kg

DRUGS (1)
  1. REBIF [Suspect]
     Indication: MULTIPLE SCLEROSIS
     Dosage: 44, 3 IN 1 WK, SUBCUTANEOUS
     Route: 058
     Dates: start: 20050513, end: 20100226

REACTIONS (3)
  - EOSINOPHIL COUNT DECREASED [None]
  - LEUKOPENIA [None]
  - NEUTROPENIA [None]
